FAERS Safety Report 23067806 (Version 1)
Quarter: 2023Q4

REPORT INFORMATION
  Report Type: Other
  Country: US (occurrence: US)
  Receive Date: 20231016
  Receipt Date: 20231016
  Transmission Date: 20240110
  Serious: Yes (Other)
  Sender: FDA-Public Use
  Company Number: US-BoehringerIngelheim-2023-BI-265370

PATIENT
  Age: 54 Year
  Sex: Male

DRUGS (5)
  1. METALYSE [Suspect]
     Active Substance: TENECTEPLASE
     Indication: Cerebellar infarction
     Route: 065
  2. NICARDIPINE [Concomitant]
     Active Substance: NICARDIPINE
     Indication: Product used for unknown indication
  3. EPINEPHRINE [Concomitant]
     Active Substance: EPINEPHRINE
  4. METHYLPREDNISOLONE [Concomitant]
     Active Substance: METHYLPREDNISOLONE
  5. HELIOX [Concomitant]
     Active Substance: OXYGEN

REACTIONS (2)
  - Pneumonia aspiration [Recovering/Resolving]
  - Lateral medullary syndrome [Unknown]
